FAERS Safety Report 19149855 (Version 1)
Quarter: 2021Q2

REPORT INFORMATION
  Report Type: Report from Study
  Country: CA (occurrence: CA)
  Receive Date: 20210417
  Receipt Date: 20210417
  Transmission Date: 20210717
  Serious: Yes (Other)
  Sender: FDA-Public Use
  Company Number: CA-UCBSA-2021016267

PATIENT
  Sex: Female

DRUGS (1)
  1. CERTOLIZUMAB PEGOL [Suspect]
     Active Substance: CERTOLIZUMAB PEGOL
     Indication: RHEUMATOID ARTHRITIS
     Dosage: 200 MILLIGRAM, EV 2 WEEKS(QOW)
     Route: 058
     Dates: start: 202005

REACTIONS (4)
  - Skin reaction [Not Recovered/Not Resolved]
  - Scab [Not Recovered/Not Resolved]
  - Maternal exposure before pregnancy [Unknown]
  - Ingrown hair [Not Recovered/Not Resolved]

NARRATIVE: CASE EVENT DATE: 2021
